FAERS Safety Report 8976926 (Version 1)
Quarter: 2012Q4

REPORT INFORMATION
  Report Type: 
  Country: US (occurrence: US)
  Receive Date: 20121220
  Receipt Date: 20121220
  Transmission Date: 20130627
  Serious: No
  Sender: FDA-Public Use
  Company Number: US-ASTRAZENECA-2012SE92174

PATIENT
  Age: 75 Year
  Sex: Male
  Weight: 106.6 kg

DRUGS (6)
  1. SYMBICORT [Suspect]
     Dosage: 80/4.5 MG, FREQUENCY UNKNOWN
     Route: 055
  2. COUMADIN [Concomitant]
     Indication: HAEMORRHAGE
  3. ROUSAVASTATIN [Concomitant]
     Indication: BLOOD CHOLESTEROL
  4. BETA BLOCKER [Concomitant]
     Indication: ARRHYTHMIA
  5. WATER PILL [Concomitant]
     Indication: BLOOD PRESSURE
  6. DIABETES MEDICATION [Concomitant]
     Indication: DIABETES MELLITUS

REACTIONS (2)
  - Sputum discoloured [Unknown]
  - Oropharyngeal pain [Unknown]
